FAERS Safety Report 7904400-4 (Version None)
Quarter: 2011Q4

REPORT INFORMATION
  Report Type: 
  Country: None (occurrence: None)
  Receive Date: 20111109
  Receipt Date: 20111101
  Transmission Date: 20120403
  Serious: Yes (Other)
  Sender: FDA-Public Use
  Company Number: US-ABBOTT-11P-163-0870726-00

PATIENT
  Sex: Female
  Weight: 43.13 kg

DRUGS (2)
  1. HUMIRA [Suspect]
     Indication: RHEUMATOID ARTHRITIS
     Route: 058
     Dates: start: 20100101, end: 20110401
  2. IBUPROFEN [Concomitant]
     Indication: RHEUMATOID ARTHRITIS

REACTIONS (5)
  - RHEUMATOID ARTHRITIS [None]
  - HYPOAESTHESIA [None]
  - MUSCLE TIGHTNESS [None]
  - NERVE COMPRESSION [None]
  - JOINT SWELLING [None]
